FAERS Safety Report 7982628-5 (Version None)
Quarter: 2011Q4

REPORT INFORMATION
  Report Type: 
  Country: None (occurrence: None)
  Receive Date: 20111215
  Receipt Date: 20111212
  Transmission Date: 20120403
  Serious: Yes (Other)
  Sender: FDA-Public Use
  Company Number: MK-GLAXOSMITHKLINE-B0769192A

PATIENT
  Age: 55 Year
  Sex: Male

DRUGS (1)
  1. FLUTICASONE PROPIONATE [Suspect]
     Indication: RESPIRATORY DISORDER
     Route: 055
     Dates: start: 20111202, end: 20111202

REACTIONS (3)
  - BRONCHOSPASM [None]
  - DYSPNOEA [None]
  - SUFFOCATION FEELING [None]
